FAERS Safety Report 8887754 (Version 1)
Quarter: 2012Q4

REPORT INFORMATION
  Report Type: 
  Country: US (occurrence: US)
  Receive Date: 20121106
  Receipt Date: 20121106
  Transmission Date: 20130627
  Serious: No
  Sender: FDA-Public Use
  Company Number: US-009507513-1210USA011253

PATIENT
  Sex: Female

DRUGS (1)
  1. DULERA [Suspect]
     Indication: ASTHMA
     Dosage: 200/5mcg taken 2 puffs in the day and 2 puffs at night
     Route: 055
     Dates: end: 20120831

REACTIONS (1)
  - Swelling face [Recovered/Resolved]
